FAERS Safety Report 6427116-2 (Version None)
Quarter: 2009Q4

REPORT INFORMATION
  Report Type: 
  Country: None (occurrence: None)
  Receive Date: 20091103
  Receipt Date: 20091103
  Transmission Date: 20100525
  Serious: No
  Sender: FDA-Public Use
  Company Number: None

PATIENT
  Age: 73 Year
  Sex: Male
  Weight: 99.3 kg

DRUGS (1)
  1. METHOTREXATE [Suspect]
     Dosage: 15 MG QWEEK PO
     Route: 048

REACTIONS (3)
  - ASTHMA [None]
  - INTERSTITIAL LUNG DISEASE [None]
  - PULMONARY FIBROSIS [None]
